FAERS Safety Report 9706554 (Version 2)
Quarter: 2014Q1

REPORT INFORMATION
  Report Type: Spontaneous
  Country: US (occurrence: US)
  Receive Date: 20131125
  Receipt Date: 20140107
  Transmission Date: 20141002
  Serious: No
  Sender: FDA-Public Use
  Company Number: US-009507513-1311USA003706

PATIENT
  Age: 62 Year
  Sex: Female
  Weight: 86.17 kg

DRUGS (1)
  1. FINASTERIDE [Suspect]
     Indication: ALOPECIA
     Dosage: TOTAL DAILY DOSE 1 MG
     Route: 048
     Dates: start: 201305

REACTIONS (2)
  - Arthritis [Recovered/Resolved]
  - Drug administration error [Unknown]
